FAERS Safety Report 8959197 (Version 1)
Quarter: 2012Q4

REPORT INFORMATION
  Report Type: Report from Study
  Country: CA (occurrence: CA)
  Receive Date: 20121212
  Receipt Date: 20121212
  Transmission Date: 20130627
  Serious: Yes (Death)
  Sender: FDA-Public Use
  Company Number: CA-ROCHE-1167040

PATIENT
  Sex: Male

DRUGS (9)
  1. RITUXIMAB [Suspect]
     Indication: CHRONIC LYMPHOCYTIC LEUKAEMIA
     Route: 042
     Dates: start: 20120814
  2. RITUXIMAB [Suspect]
     Route: 042
     Dates: start: 20120911
  3. RITUXIMAB [Suspect]
     Route: 042
     Dates: start: 20121009, end: 20121106
  4. RAMIPRIL [Concomitant]
  5. DETROL [Concomitant]
  6. AVODART [Concomitant]
  7. NAPROXEN [Concomitant]
  8. ENTROPHEN [Concomitant]
  9. ZYLOPRIM [Concomitant]

REACTIONS (1)
  - Death [Fatal]
